FAERS Safety Report 14460229 (Version 1)
Quarter: 2018Q1

REPORT INFORMATION
  Report Type: Spontaneous
  Country: US (occurrence: US)
  Receive Date: 20180130
  Receipt Date: 20180130
  Transmission Date: 20180509
  Serious: Yes (Life-Threatening)
  Sender: FDA-Public Use
  Company Number: None

PATIENT
  Sex: Female
  Weight: 61.23 kg

DRUGS (12)
  1. CALCIUM + 600 D [Concomitant]
  2. C [Concomitant]
  3. ALPRAZOLAM. [Concomitant]
     Active Substance: ALPRAZOLAM
  4. PANTOPRAZOLE [Concomitant]
     Active Substance: PANTOPRAZOLE
  5. VITAMIN B12 [Concomitant]
     Active Substance: CYANOCOBALAMIN
  6. STOOL SOFTNERS [Concomitant]
  7. CITALOPRAM [Concomitant]
     Active Substance: CITALOPRAM HYDROBROMIDE
  8. PROTONIX [Concomitant]
     Active Substance: PANTOPRAZOLE SODIUM
  9. E [Concomitant]
  10. THYROXINE (SYNTHROID) [Concomitant]
  11. OMEGA FISH OIL [Concomitant]
     Active Substance: FISH OIL\OMEGA-3 FATTY ACIDS
  12. MOBIC [Suspect]
     Active Substance: MELOXICAM
     Indication: SCIATICA
     Dosage: 1 AT BEDTIME
     Route: 048
     Dates: end: 201612

REACTIONS (7)
  - Upper gastrointestinal haemorrhage [None]
  - Circulatory collapse [None]
  - Duodenal ulcer haemorrhage [None]
  - Weight bearing difficulty [None]
  - Fibula fracture [None]
  - Iron deficiency anaemia [None]
  - Myocardial infarction [None]
